FAERS Safety Report 26203500 (Version 1)
Quarter: 2025Q4

REPORT INFORMATION
  Report Type: Report from Study
  Country: EU (occurrence: None)
  Receive Date: 20251226
  Receipt Date: 20251226
  Transmission Date: 20260118
  Serious: Yes (Other)
  Sender: ORGANON
  Company Number: None

PATIENT
  Age: 55 Year
  Sex: Female

DRUGS (1)
  1. MIRTAZAPINE [Suspect]
     Active Substance: MIRTAZAPINE
     Dosage: UNK
     Route: 061
     Dates: start: 20251213, end: 20251213

REACTIONS (4)
  - Toxicity to various agents [Unknown]
  - Hyperthermia [Unknown]
  - Confusional state [Unknown]
  - Drug abuse [Unknown]

NARRATIVE: CASE EVENT DATE: 20251213
